FAERS Safety Report 5273174-0 (Version None)
Quarter: 2007Q1

REPORT INFORMATION
  Report Type: 
  Country: None (occurrence: None)
  Receive Date: 20070322
  Receipt Date: 20070312
  Transmission Date: 20070707
  Serious: Yes (Death)
  Sender: FDA-Public Use
  Company Number: FR-PFIZER INC-2007020015

PATIENT
  Age: 88 Year
  Sex: Female

DRUGS (1)
  1. TAHOR [Suspect]
     Indication: ACUTE CORONARY SYNDROME

REACTIONS (4)
  - BLOOD CREATINE PHOSPHOKINASE INCREASED [None]
  - DEHYDRATION [None]
  - RENAL FAILURE [None]
  - RHABDOMYOLYSIS [None]
